FAERS Safety Report 18521777 (Version 2)
Quarter: 2022Q3

REPORT INFORMATION
  Report Type: Spontaneous
  Country: CA (occurrence: CA)
  Receive Date: 20201119
  Receipt Date: 20220711
  Transmission Date: 20221027
  Serious: Yes (Death, Hospitalization, Other)
  Sender: FDA-Public Use
  Company Number: CA-GLAXOSMITHKLINE-CA2020GSK224250

PATIENT

DRUGS (1)
  1. AVANDIA [Suspect]
     Active Substance: ROSIGLITAZONE MALEATE
     Indication: Diabetes mellitus
     Dosage: UNK
     Route: 048

REACTIONS (12)
  - Cardiac failure [Fatal]
  - Cardiac failure congestive [Fatal]
  - Cardiorenal syndrome [Unknown]
  - Myocardial infarction [Unknown]
  - Type 2 diabetes mellitus [Unknown]
  - Cardiomyopathy [Unknown]
  - Multiple organ dysfunction syndrome [Unknown]
  - Cardiomegaly [Unknown]
  - Atrial hypertrophy [Unknown]
  - Sinus tachycardia [Unknown]
  - Cardiac disorder [Unknown]
  - Left ventricular dysfunction [Unknown]
